FAERS Safety Report 8153819-8 (Version None)
Quarter: 2012Q1

REPORT INFORMATION
  Report Type: 
  Country: None (occurrence: None)
  Receive Date: 20120221
  Receipt Date: 20120216
  Transmission Date: 20120608
  Serious: Yes (Life-Threatening, Hospitalization)
  Sender: FDA-Public Use
  Company Number: BG-GLAXOSMITHKLINE-B0782567A

PATIENT
  Sex: Female
  Weight: 32 kg

DRUGS (4)
  1. BELLERGAMIN [Interacting]
     Indication: PRODUCT USED FOR UNKNOWN INDICATION
     Dosage: 4TAB PER DAY
     Route: 048
     Dates: start: 20120130, end: 20120130
  2. TRILEPTAL [Suspect]
     Indication: EPILEPSY
     Dosage: 600MG TWICE PER DAY
     Route: 048
  3. KEPPRA [Suspect]
     Indication: EPILEPSY
     Dosage: 500MG TWICE PER DAY
     Route: 048
  4. LAMICTAL [Suspect]
     Indication: EPILEPSY
     Dosage: 100MG TWICE PER DAY
     Route: 048

REACTIONS (6)
  - POTENTIATING DRUG INTERACTION [None]
  - COMA [None]
  - VERTIGO [None]
  - NAUSEA [None]
  - SUICIDE ATTEMPT [None]
  - HEADACHE [None]
